FAERS Safety Report 16305057 (Version 2)
Quarter: 2019Q2

REPORT INFORMATION
  Report Type: Report from Study
  Country: JP (occurrence: JP)
  Receive Date: 20190513
  Receipt Date: 20190604
  Transmission Date: 20190711
  Serious: Yes (Death, Other)
  Sender: FDA-Public Use
  Company Number: JP-009507513-1811JPN000252J

PATIENT
  Sex: Male
  Weight: 50 kg

DRUGS (5)
  1. PREVYMIS [Suspect]
     Active Substance: LETERMOVIR
     Indication: POST VIRAL FATIGUE SYNDROME
     Dosage: 480 MILLIGRAM, QD
     Route: 041
     Dates: start: 20180906, end: 20180909
  2. TACROLIMUS HYDRATE [Concomitant]
     Active Substance: TACROLIMUS
     Dosage: 1 MILLIGRAM, UNKNOWN
     Route: 042
     Dates: start: 20180819, end: 20180825
  3. SOL-MELCORT [Concomitant]
     Active Substance: METHYLPREDNISOLONE SODIUM SUCCINATE
     Dosage: 25 MILLIGRAM, QD
     Route: 042
     Dates: start: 20180826, end: 20180912
  4. ACICLOVIR [Concomitant]
     Active Substance: ACYCLOVIR
     Dosage: 200 MILLIGRAM, QD
     Route: 048
     Dates: start: 20180811, end: 20180905
  5. FENTANYL CITRATE. [Concomitant]
     Active Substance: FENTANYL CITRATE
     Dosage: 0.5 MILLIGRAM, UNKNOWN
     Route: 042
     Dates: start: 20180831, end: 20180901

REACTIONS (3)
  - Bone marrow transplant rejection [Fatal]
  - Toxic epidermal necrolysis [Fatal]
  - Engraft failure [Fatal]
